FAERS Safety Report 25200974 (Version 2)
Quarter: 2025Q2

REPORT INFORMATION
  Report Type: Report from Study
  Country: US (occurrence: US)
  Receive Date: 20250416
  Receipt Date: 20250422
  Transmission Date: 20250717
  Serious: Yes (Hospitalization)
  Sender: ABBVIE
  Company Number: US-ABBVIE-6157311

PATIENT
  Age: 78 Year
  Sex: Female

DRUGS (2)
  1. RINVOQ [Suspect]
     Active Substance: UPADACITINIB
     Indication: Rheumatoid arthritis
     Route: 048
     Dates: start: 20230125, end: 202411
  2. RINVOQ [Suspect]
     Active Substance: UPADACITINIB
     Indication: Rheumatoid arthritis
     Route: 048
     Dates: end: 2025

REACTIONS (9)
  - Localised infection [Recovering/Resolving]
  - Drug hypersensitivity [Unknown]
  - Pyrexia [Unknown]
  - Immunodeficiency [Recovering/Resolving]
  - Pneumonia [Recovering/Resolving]
  - Malaise [Recovering/Resolving]
  - Pustule [Recovering/Resolving]
  - Streptococcal infection [Unknown]
  - Delirium [Unknown]

NARRATIVE: CASE EVENT DATE: 20250201
